FAERS Safety Report 18791115 (Version 1)
Quarter: 2021Q1

REPORT INFORMATION
  Report Type: Spontaneous
  Country: US (occurrence: US)
  Receive Date: 20210126
  Receipt Date: 20210126
  Transmission Date: 20210419
  Serious: No
  Sender: FDA-Public Use
  Company Number: US-ROCHE-2713451

PATIENT
  Age: 67 Year
  Sex: Female
  Weight: 54.03 kg

DRUGS (6)
  1. LEVOTHYROXINE SODIUM. [Concomitant]
     Active Substance: LEVOTHYROXINE SODIUM
     Indication: HYPOTHYROIDISM
     Dosage: BEGAN 1 YEAR AGO DATE NOT CLARIFIED
     Route: 048
  2. MELATONIN [Concomitant]
     Active Substance: MELATONIN
     Dosage: AT NIGHT
  3. LORAZEPAM. [Concomitant]
     Active Substance: LORAZEPAM
     Dosage: PRESCRIBED AS 1 MG TWICE DAILY? TAKING 2 MG DAILY
     Route: 048
  4. RITUXAN HYCELA [Suspect]
     Active Substance: HYALURONIDASE (HUMAN RECOMBINANT)\RITUXIMAB
     Indication: NON-HODGKIN^S LYMPHOMA
     Dosage: INJECTION IN STOMACH FOR ONE DOSE
     Route: 058
     Dates: start: 202006, end: 202006
  5. RITUXAN [Suspect]
     Active Substance: RITUXIMAB
     Indication: NON-HODGKIN^S LYMPHOMA
     Dosage: FOR 3 TOTAL DOSES
     Route: 042
     Dates: start: 20200604, end: 20200624
  6. LEVOXYL [Concomitant]
     Active Substance: LEVOTHYROXINE SODIUM
     Dosage: BEGAN 10 YEARS AGO NOT FURTHER CLARIFIED
     Route: 048

REACTIONS (8)
  - Off label use [Unknown]
  - Fatigue [Not Recovered/Not Resolved]
  - Rash [Recovered/Resolved]
  - Abdominal distension [Recovered/Resolved]
  - Increased appetite [Unknown]
  - Insomnia [Not Recovered/Not Resolved]
  - Weight increased [Recovered/Resolved]
  - Confusional state [Not Recovered/Not Resolved]

NARRATIVE: CASE EVENT DATE: 202006
